FAERS Safety Report 8869361 (Version 1)
Quarter: 2012Q4

REPORT INFORMATION
  Report Type: 
  Country: BE (occurrence: BE)
  Receive Date: 20121028
  Receipt Date: 20121028
  Transmission Date: 20130627
  Serious: Yes (Hospitalization)
  Sender: FDA-Public Use
  Company Number: BE-MERCK-1210BEL011290

PATIENT
  Age: 37 Year
  Sex: Male

DRUGS (4)
  1. PEGINTRON [Suspect]
     Indication: HEPATITIS C
     Dosage: 120 mg, UNK
     Dates: start: 20120801, end: 2012
  2. PEGINTRON [Suspect]
     Dosage: UNK
     Dates: start: 2012, end: 20121008
  3. REBETOL [Suspect]
     Indication: HEPATITIS C
     Dosage: 1000 mg, qd
     Dates: start: 20120801, end: 20121008
  4. VICTRELIS [Suspect]
     Indication: HEPATITIS C
     Dosage: UNK
     Dates: start: 20120829, end: 20121008

REACTIONS (4)
  - Platelet count decreased [Recovering/Resolving]
  - Neutrophil count decreased [Recovering/Resolving]
  - Sepsis [Recovering/Resolving]
  - Platelet count decreased [Not Recovered/Not Resolved]
